FAERS Safety Report 7792890-X (Version None)
Quarter: 2011Q4

REPORT INFORMATION
  Report Type: 
  Country: None (occurrence: None)
  Receive Date: 20111003
  Receipt Date: 20110923
  Transmission Date: 20120403
  Serious: Yes (Hospitalization)
  Sender: FDA-Public Use
  Company Number: US-BRISTOL-MYERS SQUIBB COMPANY-16082125

PATIENT
  Age: 55 Year
  Sex: Male
  Weight: 41 kg

DRUGS (14)
  1. DOCUSATE SODIUM [Concomitant]
     Dates: start: 20100707
  2. MIRALAX [Concomitant]
     Dates: start: 20110316
  3. GEMCITABINE HYDROCHLORIDE [Suspect]
     Indication: NON-SMALL CELL LUNG CANCER
     Dosage: ON DAY1 + 8. PRIOR TO EVENT:12 INF
     Route: 042
     Dates: start: 20110209
  4. COLACE [Concomitant]
  5. DECADRON [Concomitant]
     Indication: OCULAR HYPERAEMIA
     Dates: start: 20110727
  6. CETUXIMAB [Suspect]
     Indication: NON-SMALL CELL LUNG CANCER
     Dosage: DURATION: REG 1-UNKNOWN, REG2- 15JUN-9SEP11 (87DAYS). PRIOR TO EVENT 5 INF, LAST DOSE ON 24AUG11
     Route: 042
     Dates: end: 20110909
  7. VICODIN [Concomitant]
  8. LISINOPRIL [Concomitant]
  9. ALBUTEROL [Concomitant]
  10. CARBOPLATIN [Suspect]
     Indication: NON-SMALL CELL LUNG CANCER
     Dosage: AUC 5 ON DAY 1. PRIOR TO EVENT: 6INF
     Route: 042
     Dates: start: 20110209
  11. MORPHINE SULFATE [Concomitant]
     Dates: start: 20110728
  12. ASPIRIN [Concomitant]
  13. CYCLOBENZAPRINE [Concomitant]
     Indication: BACK PAIN
     Dates: start: 20110728
  14. MEGACE [Concomitant]
     Dates: start: 20110810

REACTIONS (1)
  - LARGE INTESTINE PERFORATION [None]
